FAERS Safety Report 15888123 (Version 2)
Quarter: 2019Q1

REPORT INFORMATION
  Report Type: Spontaneous
  Country: IT (occurrence: IT)
  Receive Date: 20190130
  Receipt Date: 20190211
  Transmission Date: 20190417
  Serious: Yes (Life-Threatening, Hospitalization, Other)
  Sender: FDA-Public Use
  Company Number: IT-AUROBINDO-AUR-APL-2019-002675

PATIENT

DRUGS (5)
  1. INFLUENZA VACCINE [Suspect]
     Active Substance: INFLUENZA VIRUS VACCINE
     Indication: PROPHYLAXIS
     Dosage: UNK
     Route: 065
  2. IBUPROFEN. [Suspect]
     Active Substance: IBUPROFEN
     Indication: INFLAMMATION
     Dosage: 600 MILLIGRAM EVERY 8 HRS (1800 MG)
     Route: 065
  3. IBUPROFEN. [Suspect]
     Active Substance: IBUPROFEN
     Indication: PERICARDIAL EFFUSION
  4. COLCHICINE. [Suspect]
     Active Substance: COLCHICINE
     Indication: PERICARDIAL EFFUSION
     Dosage: 0.5 MILLIGRAM, TWO TIMES A DAY (0.5 MG, BID)
     Route: 065
  5. COLCHICINE. [Suspect]
     Active Substance: COLCHICINE
     Dosage: 1 MILLIGRAM, ONCE A DAY (0.5 MG, BID)
     Route: 065

REACTIONS (25)
  - Metabolic alkalosis [Recovered/Resolved]
  - Syncope [Recovered/Resolved]
  - Pericardial effusion [Recovered/Resolved]
  - Mitral valve incompetence [Recovered/Resolved]
  - Vaccination failure [Recovered/Resolved]
  - Off label use [Unknown]
  - Drug ineffective [Recovered/Resolved]
  - Bronchial wall thickening [Recovered/Resolved]
  - Dyspnoea [Recovered/Resolved]
  - Therapy non-responder [Unknown]
  - Pulmonary hypertension [Unknown]
  - Tricuspid valve incompetence [Recovered/Resolved]
  - Diarrhoea [Recovered/Resolved]
  - Cardiac murmur [Recovered/Resolved]
  - Atelectasis [Recovered/Resolved]
  - Cardiomegaly [Recovered/Resolved]
  - Diastolic dysfunction [Recovered/Resolved]
  - Respiratory failure [Recovered/Resolved]
  - Hypoxia [Recovered/Resolved]
  - Pericarditis [Recovered/Resolved]
  - Respiratory alkalosis [Recovered/Resolved]
  - Influenza [Recovered/Resolved]
  - Bundle branch block right [Unknown]
  - Pleural effusion [Unknown]
  - Urinary incontinence [Recovered/Resolved]
